FAERS Safety Report 16613617 (Version 6)
Quarter: 2020Q3

REPORT INFORMATION
  Report Type: Report from Study
  Country: US (occurrence: US)
  Receive Date: 20190723
  Receipt Date: 20200703
  Transmission Date: 20201102
  Serious: Yes (Hospitalization)
  Sender: FDA-Public Use
  Company Number: US-ROCHE-2352534

PATIENT
  Age: 70 Year
  Sex: Male
  Weight: 104.42 kg

DRUGS (14)
  1. GABAPENTIN. [Concomitant]
     Active Substance: GABAPENTIN
     Route: 048
     Dates: start: 2018
  2. DOXYCYCLINE HYCLATE. [Concomitant]
     Active Substance: DOXYCYCLINE HYCLATE
     Indication: URINARY TRACT INFECTION
     Dosage: 2 TIMES A DAY FOR 28 DAYS ; ONGOING YES
     Route: 048
     Dates: start: 20200610
  3. RITUXAN [Suspect]
     Active Substance: RITUXIMAB
     Route: 042
     Dates: start: 2012, end: 2017
  4. TRAZODONE [Concomitant]
     Active Substance: TRAZODONE HYDROCHLORIDE
     Route: 048
     Dates: start: 2016
  5. OCREVUS [Suspect]
     Active Substance: OCRELIZUMAB
     Indication: PRIMARY PROGRESSIVE MULTIPLE SCLEROSIS
     Dosage: , 12/APR/2018, 12/OCT/2018, 19/APR/2019, 07/SEP/2019, 25/OCT/2019
     Route: 042
     Dates: start: 20170914, end: 20171005
  6. RITUXAN [Suspect]
     Active Substance: RITUXIMAB
     Indication: PRIMARY PROGRESSIVE MULTIPLE SCLEROSIS
     Route: 042
     Dates: start: 20120921, end: 20170321
  7. CRANBERRY [VACCINIUM SPP.] [Concomitant]
     Route: 048
  8. ATORVASTATIN [Concomitant]
     Active Substance: ATORVASTATIN
     Indication: BLOOD CHOLESTEROL INCREASED
     Route: 048
  9. OCREVUS [Suspect]
     Active Substance: OCRELIZUMAB
     Dosage: MOST RECENT DOSES OF OCRELIZUMAB: 12/OCT/2018, 19/APR/2019, 07/SEP/2019, 25/OCT/2019
     Route: 042
     Dates: start: 20180412
  10. RITUXAN [Suspect]
     Active Substance: RITUXIMAB
     Route: 042
     Dates: start: 2006
  11. TIZANIDINE. [Concomitant]
     Active Substance: TIZANIDINE
     Indication: MUSCLE SPASMS
     Route: 048
  12. AMANTADINE. [Concomitant]
     Active Substance: AMANTADINE HYDROCHLORIDE
     Route: 048
     Dates: start: 2006
  13. BIOTIN [Concomitant]
     Active Substance: BIOTIN
     Route: 048
  14. VITAMIN C [Concomitant]
     Active Substance: ASCORBIC ACID
     Route: 048

REACTIONS (19)
  - Swelling [Unknown]
  - Sleep apnoea syndrome [Not Recovered/Not Resolved]
  - Escherichia infection [Not Recovered/Not Resolved]
  - Muscular weakness [Unknown]
  - Gait inability [Recovered/Resolved]
  - Asthenia [Not Recovered/Not Resolved]
  - Decubitus ulcer [Recovered/Resolved]
  - Staphylococcal infection [Recovered/Resolved]
  - Urinary tract infection [Not Recovered/Not Resolved]
  - Multiple sclerosis relapse [Recovered/Resolved]
  - Furuncle [Not Recovered/Not Resolved]
  - Mobility decreased [Not Recovered/Not Resolved]
  - Thinking abnormal [Recovered/Resolved]
  - Infection [Unknown]
  - Intentional product use issue [Unknown]
  - Hypoaesthesia [Recovered/Resolved]
  - Chills [Unknown]
  - Pyrexia [Recovered/Resolved]
  - Off label use [Unknown]

NARRATIVE: CASE EVENT DATE: 2006
